FAERS Safety Report 17394832 (Version 1)
Quarter: 2020Q1

REPORT INFORMATION
  Report Type: Spontaneous
  Country: DE (occurrence: DE)
  Receive Date: 20200210
  Receipt Date: 20200210
  Transmission Date: 20200409
  Serious: Yes (Life-Threatening, Hospitalization)
  Sender: FDA-Public Use
  Company Number: DE-AUROBINDO-AUR-APL-2020-006022

PATIENT
  Age: 61 Year
  Sex: Female

DRUGS (7)
  1. TEGRETAL [Concomitant]
     Active Substance: CARBAMAZEPINE
     Indication: PRODUCT USED FOR UNKNOWN INDICATION
     Dosage: UNK
     Route: 065
  2. MST (MORPHINE SULFATE) [Interacting]
     Active Substance: MORPHINE SULFATE
     Dosage: 30 MILLIGRAM, ONCE A DAY
     Route: 065
  3. GABAPENTIN FILM-COATED TABLET [Suspect]
     Active Substance: GABAPENTIN
     Indication: PRODUCT USED FOR UNKNOWN INDICATION
     Dosage: 1 DOSAGE FORM (1 TABLET, SINGLE)
     Route: 065
  4. URBASON [Concomitant]
     Active Substance: METHYLPREDNISOLONE
     Indication: ANTI-INFECTIVE THERAPY
     Dosage: UNK
     Route: 065
  5. MST (MORPHINE SULFATE) [Interacting]
     Active Substance: MORPHINE SULFATE
     Dosage: 120 MILLIGRAM, ONCE A DAY (60 MG, BID)
     Route: 065
  6. MST (MORPHINE SULFATE) [Interacting]
     Active Substance: MORPHINE SULFATE
     Indication: PAIN
     Dosage: 20 MILLIGRAM, ONCE A DAY
     Route: 065
  7. MST (MORPHINE SULFATE) [Interacting]
     Active Substance: MORPHINE SULFATE
     Indication: PAIN
     Dosage: UNK
     Route: 065
     Dates: start: 1995

REACTIONS (6)
  - Intensive care [Recovered/Resolved]
  - Blood potassium decreased [Unknown]
  - Metabolic disorder [Unknown]
  - Body temperature decreased [Unknown]
  - Memory impairment [Unknown]
  - Drug interaction [Unknown]

NARRATIVE: CASE EVENT DATE: 1999
